FAERS Safety Report 24587393 (Version 1)
Quarter: 2024Q4

REPORT INFORMATION
  Report Type: Spontaneous
  Country: CA (occurrence: CA)
  Receive Date: 20241107
  Receipt Date: 20241107
  Transmission Date: 20250115
  Serious: Yes (Other)
  Sender: ACCORD
  Company Number: None

PATIENT
  Age: 68 Year
  Sex: Female
  Weight: 74 kg

DRUGS (8)
  1. METHOTREXATE [Suspect]
     Active Substance: METHOTREXATE
     Indication: Rheumatoid arthritis
     Route: 065
  2. ATORVASTATIN [Concomitant]
     Active Substance: ATORVASTATIN
  3. BISOPROLOL [Concomitant]
     Active Substance: BISOPROLOL\BISOPROLOL FUMARATE
     Indication: Hypertension
     Dosage: AS REQUIRED
  4. SACUBITRIL\VALSARTAN [Concomitant]
     Active Substance: SACUBITRIL\VALSARTAN
     Indication: Hypertension
     Dosage: AS REQUIRED
  5. FOLIC ACID [Concomitant]
     Active Substance: FOLIC ACID
  6. IRON [Concomitant]
     Active Substance: IRON
     Indication: Anaemia
     Dosage: AS REQUIRED
  7. OMEGA 3 [Concomitant]
     Active Substance: CAPSAICIN
  8. METHOTREXATE [Suspect]
     Active Substance: METHOTREXATE
     Indication: Rheumatoid arthritis
     Dosage: 1 EVERY 1 WEEKS
     Route: 065

REACTIONS (2)
  - Condition aggravated [Not Recovered/Not Resolved]
  - Non-Hodgkin^s lymphoma [Not Recovered/Not Resolved]
